FAERS Safety Report 15504023 (Version 1)
Quarter: 2018Q4

REPORT INFORMATION
  Report Type: Report from Study
  Country: US (occurrence: US)
  Receive Date: 20181016
  Receipt Date: 20181016
  Transmission Date: 20190205
  Serious: No
  Sender: FDA-Public Use
  Company Number: US-AMGEN INC.-USASL2018130336

PATIENT
  Age: 51 Year
  Sex: Female
  Weight: 40.82 kg

DRUGS (1)
  1. AIMOVIG [Suspect]
     Active Substance: ERENUMAB-AOOE
     Indication: MIGRAINE
     Dosage: UNK, UNSUCCESSFUL ATTEMPT
     Route: 065
     Dates: start: 20180918

REACTIONS (4)
  - Product dose omission [Unknown]
  - Accidental exposure to product [Unknown]
  - Device difficult to use [Unknown]
  - Injection site reaction [Unknown]

NARRATIVE: CASE EVENT DATE: 20180918
